FAERS Safety Report 16324956 (Version 1)
Quarter: 2019Q2

REPORT INFORMATION
  Report Type: Report from Study
  Country: AR (occurrence: AR)
  Receive Date: 20190517
  Receipt Date: 20190517
  Transmission Date: 20190711
  Serious: Yes (Life-Threatening, Other)
  Sender: FDA-Public Use
  Company Number: AR-ROCHE-2301034

PATIENT
  Age: 47 Year
  Sex: Female
  Weight: 80 kg

DRUGS (5)
  1. REMICADE [Concomitant]
     Active Substance: INFLIXIMAB
  2. CORTISONE [Concomitant]
     Active Substance: CORTISONE\HYDROCORTISONE
  3. BENADRYL [Concomitant]
     Active Substance: DIPHENHYDRAMINE HYDROCHLORIDE
  4. MABTHERA [Suspect]
     Active Substance: RITUXIMAB
     Indication: PRODUCT USED FOR UNKNOWN INDICATION
     Route: 041
  5. VESICARE [Concomitant]
     Active Substance: SOLIFENACIN SUCCINATE

REACTIONS (7)
  - Laryngeal oedema [Unknown]
  - Inflammation [Recovering/Resolving]
  - Dyspnoea [Unknown]
  - Dysphagia [Unknown]
  - Hypersensitivity [Unknown]
  - Swelling [Unknown]
  - Apparent death [Unknown]

NARRATIVE: CASE EVENT DATE: 20100420
